FAERS Safety Report 7963407-1 (Version None)
Quarter: 2011Q4

REPORT INFORMATION
  Report Type: 
  Country: None (occurrence: None)
  Receive Date: 20111205
  Receipt Date: 20111125
  Transmission Date: 20120403
  Serious: Yes (Hospitalization)
  Sender: FDA-Public Use
  Company Number: AUR-APL-2011-05986

PATIENT
  Age: 66 Year
  Sex: Male
  Weight: 79 kg

DRUGS (8)
  1. INSULIN BASAL (INSULIN HUMAN) [Concomitant]
  2. CLEMASTINE FUMARATE [Concomitant]
  3. PANTOPRAZOLE SODIUM [Concomitant]
  4. ZOFRAN [Concomitant]
  5. METFORMIN HCL [Suspect]
     Indication: DIABETES MELLITUS
     Dosage: 2550 UNKNOWN (850  UNKNOWN, 3 N 1 D),ORAL
     Route: 048
     Dates: start: 19960101, end: 20111117
  6. TEMSIROLIMUS [Suspect]
     Indication: METASTATIC RENAL CELL CARCINOMA
     Dosage: 25 MG, 1 WK, INTRAVENOUS
     Route: 042
     Dates: start: 20111027
  7. CORTISONE ACETATE [Concomitant]
  8. DEXAMETHASONE [Concomitant]

REACTIONS (9)
  - GAMMA-GLUTAMYLTRANSFERASE INCREASED [None]
  - HEPATIC ENZYME INCREASED [None]
  - ASPARTATE AMINOTRANSFERASE INCREASED [None]
  - BLOOD LACTATE DEHYDROGENASE INCREASED [None]
  - BLOOD CREATININE INCREASED [None]
  - ALANINE AMINOTRANSFERASE INCREASED [None]
  - GLOMERULAR FILTRATION RATE DECREASED [None]
  - BLOOD BILIRUBIN INCREASED [None]
  - BLOOD GLUCOSE INCREASED [None]
